FAERS Safety Report 7197106-3 (Version None)
Quarter: 2010Q4

REPORT INFORMATION
  Report Type: 
  Country: None (occurrence: None)
  Receive Date: 20101224
  Receipt Date: 20101210
  Transmission Date: 20110411
  Serious: Yes (Other)
  Sender: FDA-Public Use
  Company Number: PHBS2009US01057

PATIENT
  Sex: Male
  Weight: 80.9 kg

DRUGS (11)
  1. EXJADE [Suspect]
     Indication: HAEMOSIDEROSIS
     Dosage: 1625 MG, QD
     Route: 048
     Dates: start: 20090226, end: 20090316
  2. DIURETICS [Concomitant]
  3. RESTACT [Concomitant]
     Indication: TRANSFUSION REACTION
  4. DEFEROXAMINE MESYLATE [Concomitant]
     Dosage: 02 GM SQ OVER 08 HRS EACH NIGHT
     Route: 042
  5. RED BLOOD CELLS, CONCENTRATED [Concomitant]
  6. ALLOPURINOL [Concomitant]
     Dosage: 100 MG DAILY
     Route: 048
  7. ASPIRIN [Concomitant]
     Dosage: 324 MG DAILY
     Route: 048
  8. SIMVASTATIN [Concomitant]
  9. FUROSEMIDE [Concomitant]
  10. SIMETHICONE [Concomitant]
  11. METOLAZONE [Concomitant]
     Indication: WEIGHT INCREASED

REACTIONS (13)
  - CARDIAC MURMUR [None]
  - CHEST DISCOMFORT [None]
  - CONJUNCTIVITIS [None]
  - DIARRHOEA [None]
  - DYSPNOEA EXERTIONAL [None]
  - OEDEMA [None]
  - OEDEMA PERIPHERAL [None]
  - PALLOR [None]
  - RALES [None]
  - RENAL IMPAIRMENT [None]
  - URINARY INCONTINENCE [None]
  - VENOUS PRESSURE JUGULAR ABNORMAL [None]
  - WEIGHT INCREASED [None]
